FAERS Safety Report 25849361 (Version 2)
Quarter: 2025Q3

REPORT INFORMATION
  Report Type: Report from Study
  Country: CA (occurrence: CA)
  Receive Date: 20250925
  Receipt Date: 20250928
  Transmission Date: 20251021
  Serious: Yes (Other)
  Sender: CELLTRION
  Company Number: CA-CELLTRION INC.-2025CA023048

PATIENT

DRUGS (1)
  1. INFLIXIMAB-DYYB [Suspect]
     Active Substance: INFLIXIMAB-DYYB
     Indication: Crohn^s disease
     Dosage: MAINTENANCE - 517.5 MG (7.5MG/KG) EVERY 4 WEEKS 4B3M552
     Route: 042
     Dates: start: 20250709

REACTIONS (5)
  - Haematochezia [Unknown]
  - Abdominal pain [Unknown]
  - Diarrhoea [Unknown]
  - Off label use [Unknown]
  - Treatment delayed [Unknown]

NARRATIVE: CASE EVENT DATE: 20250101
